FAERS Safety Report 8241544-4 (Version None)
Quarter: 2012Q1

REPORT INFORMATION
  Report Type: 
  Country: None (occurrence: None)
  Receive Date: 20120328
  Receipt Date: 20120109
  Transmission Date: 20120608
  Serious: No
  Sender: FDA-Public Use
  Company Number: US-COVIDIEN/TYCO HEALTHCARE/MALLINCKRODT-T201200421

PATIENT
  Age: 63 Year
  Sex: Female

DRUGS (1)
  1. METHADOSE [Suspect]
     Indication: PAIN
     Dosage: UNK

REACTIONS (2)
  - TOOTH EROSION [None]
  - TOOTH ABSCESS [None]
